FAERS Safety Report 6166281-1 (Version None)
Quarter: 2009Q2

REPORT INFORMATION
  Report Type: 
  Country: None (occurrence: None)
  Receive Date: 20090424
  Receipt Date: 20090422
  Transmission Date: 20091009
  Serious: Yes (Death)
  Sender: FDA-Public Use
  Company Number: PL-BRISTOL-MYERS SQUIBB COMPANY-14593479

PATIENT
  Age: 32 Year
  Sex: Female
  Weight: 68 kg

DRUGS (2)
  1. ABILIFY [Suspect]
     Indication: SCHIZOPHRENIA
     Dosage: 9.75MG X3(30MAR09 FOR COUPLE OF DAYS) AND LAST DOSE:9.75MGX2 ON 19APR09.
     Route: 030
     Dates: start: 20090330
  2. ANTIBIOTIC [Concomitant]
     Route: 030

REACTIONS (1)
  - RESPIRATORY FAILURE [None]
